FAERS Safety Report 24019352 (Version 2)
Quarter: 2024Q3

REPORT INFORMATION
  Report Type: Report from Study
  Country: US (occurrence: US)
  Receive Date: 20240627
  Receipt Date: 20240730
  Transmission Date: 20241017
  Serious: Yes (Other)
  Sender: EXELIXIS
  Company Number: US-EXELIXIS-CABO-24078748

PATIENT
  Sex: Male
  Weight: 70.04 kg

DRUGS (13)
  1. CABOMETYX [Suspect]
     Active Substance: CABOZANTINIB S-MALATE
     Indication: Renal cell carcinoma
     Dosage: 60 MG, QD
     Route: 048
     Dates: start: 20210128
  2. CABOMETYX [Suspect]
     Active Substance: CABOZANTINIB S-MALATE
     Dosage: 60 MG, QD
     Route: 048
     Dates: start: 202212
  3. SIMVASTATIN [Concomitant]
     Active Substance: SIMVASTATIN
  4. FLUTICASONE [Concomitant]
     Active Substance: FLUTICASONE
  5. SODIUM FLUORIDE [Concomitant]
     Active Substance: SODIUM FLUORIDE\SODIUM MONOFLUOROPHOSPHATE
  6. HYDROCORTISONE [Concomitant]
     Active Substance: HYDROCORTISONE\HYDROCORTISONE ACETATE
  7. LEVOTHYROXINE [Concomitant]
     Active Substance: LEVOTHYROXINE\LEVOTHYROXINE SODIUM
  8. CLINDAMYCIN [Concomitant]
     Active Substance: CLINDAMYCIN
  9. FAMOTIDINE [Concomitant]
     Active Substance: FAMOTIDINE
  10. VITAMIN B12 [Concomitant]
     Active Substance: CYANOCOBALAMIN
  11. CALCIUM\VITAMIN D [Concomitant]
     Active Substance: CALCIUM\VITAMIN D
  12. MAGNESIUM [Concomitant]
     Active Substance: MAGNESIUM
  13. ALLOPURINOL [Concomitant]
     Active Substance: ALLOPURINOL

REACTIONS (8)
  - Neuropathy peripheral [Unknown]
  - Radiotherapy [Unknown]
  - Metastases to liver [Unknown]
  - Metastases to bone [Unknown]
  - Blister [Unknown]
  - Diarrhoea [Unknown]
  - Skin ulcer [Unknown]
  - Product dose omission issue [Unknown]
